FAERS Safety Report 16805681 (Version 2)
Quarter: 2019Q4

REPORT INFORMATION
  Report Type: Spontaneous
  Country: AT (occurrence: AT)
  Receive Date: 20190913
  Receipt Date: 20191129
  Transmission Date: 20200122
  Serious: Yes (Disabling, Other)
  Sender: FDA-Public Use
  Company Number: AT-SA-2019SA253557

PATIENT
  Age: 34 Year
  Sex: Female

DRUGS (1)
  1. AUBAGIO [Suspect]
     Active Substance: TERIFLUNOMIDE
     Dosage: UNK
     Route: 065
     Dates: start: 20180613, end: 201909

REACTIONS (4)
  - Vaginal haemorrhage [Recovered/Resolved]
  - Alopecia [Unknown]
  - Haematochezia [Unknown]
  - Dry skin [Unknown]

NARRATIVE: CASE EVENT DATE: 201907
